FAERS Safety Report 7015645-2 (Version None)
Quarter: 2010Q3

REPORT INFORMATION
  Report Type: 
  Country: None (occurrence: None)
  Receive Date: 20100927
  Receipt Date: 20100924
  Transmission Date: 20110219
  Serious: Yes (Hospitalization)
  Sender: FDA-Public Use
  Company Number: IT-BRISTOL-MYERS SQUIBB COMPANY-15294176

PATIENT
  Age: 58 Year
  Sex: Male

DRUGS (5)
  1. CYCLOPHOSPHAMIDE [Suspect]
     Indication: B-CELL LYMPHOMA
     Dosage: DOSE WAS REDUCED TO 30 PERCENT
     Dates: start: 20080101
  2. DOXORUBICIN HCL [Suspect]
     Indication: B-CELL LYMPHOMA
     Dosage: DOSE WAS REDUCED TO 30 PERCENT
     Dates: start: 20080101
  3. VINCRISTINE SULFATE [Suspect]
     Indication: B-CELL LYMPHOMA
     Dosage: DOSE WAS REDUCED TO 30 PERCENT
     Dates: start: 20080101
  4. RITUXIMAB [Suspect]
     Indication: B-CELL LYMPHOMA
     Dosage: DOSE WAS REDUCED TO 30 PERCENT, RE-INTRODUCED
     Dates: start: 20080101
  5. PREDNISONE [Suspect]
     Indication: B-CELL LYMPHOMA
     Dosage: DOSE WAS REDUCED TO 30 PERCENT
     Dates: start: 20080101

REACTIONS (1)
  - HEPATITIS B [None]
